FAERS Safety Report 11857144 (Version 1)
Quarter: 2015Q4

REPORT INFORMATION
  Report Type: Spontaneous
  Country: US (occurrence: US)
  Receive Date: 20151221
  Receipt Date: 20151221
  Transmission Date: 20160305
  Serious: Yes (Hospitalization, Other)
  Sender: FDA-Public Use
  Company Number: US-PFIZER INC-2015449972

PATIENT
  Age: 49 Year
  Sex: Male
  Weight: 107 kg

DRUGS (2)
  1. LYRICA [Suspect]
     Active Substance: PREGABALIN
     Indication: NEUROPATHY PERIPHERAL
     Dosage: 75 MG, 2X/DAY
     Route: 048
     Dates: start: 20151115, end: 20151210
  2. LYRICA [Suspect]
     Active Substance: PREGABALIN
     Dosage: 150 MG, 2X/DAY
     Route: 048
     Dates: start: 20151211

REACTIONS (6)
  - Somnolence [Not Recovered/Not Resolved]
  - Fluid retention [Unknown]
  - Drug ineffective [Not Recovered/Not Resolved]
  - Loss of consciousness [Unknown]
  - Hyperhidrosis [Not Recovered/Not Resolved]
  - Drooling [Not Recovered/Not Resolved]

NARRATIVE: CASE EVENT DATE: 20151122
